APPROVED DRUG PRODUCT: MODAFINIL
Active Ingredient: MODAFINIL
Strength: 200MG
Dosage Form/Route: TABLET;ORAL
Application: A207196 | Product #002 | TE Code: AB
Applicant: APPCO PHARMA LLC
Approved: Aug 16, 2017 | RLD: No | RS: No | Type: RX